FAERS Safety Report 4611122-4 (Version None)
Quarter: 2005Q1

REPORT INFORMATION
  Report Type: 
  Country: None (occurrence: None)
  Receive Date: 20050317
  Receipt Date: 20050307
  Transmission Date: 20050727
  Serious: Yes (Other)
  Sender: FDA-Public Use
  Company Number: US-ABBOTT-05P-163-0293321-00

PATIENT
  Sex: Male
  Weight: 104 kg

DRUGS (5)
  1. BIAXIN [Suspect]
     Indication: PNEUMONIA
     Route: 048
     Dates: start: 20010201, end: 20010201
  2. BIAXIN [Suspect]
     Route: 048
     Dates: start: 20010701, end: 20010701
  3. FUROSEMIDE [Concomitant]
     Indication: OEDEMA PERIPHERAL
     Route: 048
     Dates: start: 20010101
  4. VITAMINS [Concomitant]
     Indication: PROPHYLAXIS
     Route: 048
     Dates: start: 20010101
  5. POTASSIUM CHLORIDE [Concomitant]
     Indication: MINERAL SUPPLEMENTATION
     Route: 048
     Dates: start: 20010101

REACTIONS (7)
  - ARRHYTHMIA [None]
  - EMBOLISM [None]
  - HEADACHE [None]
  - INSOMNIA [None]
  - THROMBOSIS [None]
  - VISUAL DISTURBANCE [None]
  - VISUAL FIELD DEFECT [None]
